FAERS Safety Report 8378531-1 (Version None)
Quarter: 2012Q2

REPORT INFORMATION
  Report Type: 
  Country: None (occurrence: None)
  Receive Date: 20120522
  Receipt Date: 20120514
  Transmission Date: 20120825
  Serious: Yes (Other)
  Sender: FDA-Public Use
  Company Number: CA-ABBOTT-12P-028-0920323-00

PATIENT
  Sex: Female

DRUGS (2)
  1. HUMIRA [Suspect]
     Indication: CROHN'S DISEASE
     Route: 058
     Dates: start: 20110603, end: 20120403
  2. HUMIRA [Suspect]
     Route: 058
     Dates: start: 20120514

REACTIONS (5)
  - ENTEROVESICAL FISTULA [None]
  - VESICAL FISTULA [None]
  - INFLAMMATION [None]
  - CHOLECYSTECTOMY [None]
  - FALLOPIAN TUBE DISORDER [None]
